FAERS Safety Report 13584396 (Version 1)
Quarter: 2017Q2

REPORT INFORMATION
  Report Type: Spontaneous
  Country: US (occurrence: US)
  Receive Date: 20170526
  Receipt Date: 20170526
  Transmission Date: 20170830
  Serious: Yes (Hospitalization)
  Sender: FDA-Public Use
  Company Number: US-BION-006335

PATIENT
  Age: 75 Year
  Sex: Male

DRUGS (14)
  1. ENTACAPONE. [Concomitant]
     Active Substance: ENTACAPONE
     Dosage: Q3H WHILE AWAKE
  2. LEVODOPA [Concomitant]
     Active Substance: LEVODOPA
     Dosage: Q3H WHILE AWAKE
  3. DONEPEZIL/DONEPEZIL HYDROCHLORIDE [Concomitant]
  4. RISEDRONIC ACID [Concomitant]
     Active Substance: RISEDRONIC ACID
  5. FLUOXETINE [Concomitant]
     Active Substance: FLUOXETINE HYDROCHLORIDE
  6. CARBIDOPA. [Concomitant]
     Active Substance: CARBIDOPA
     Dosage: Q3H WHILE AWAKE
  7. SITAGLIPTIN/SITAGLIPTIN PHOSPHATE [Concomitant]
  8. MAGNESIUM OXIDE. [Concomitant]
     Active Substance: MAGNESIUM OXIDE
  9. METFORMIN [Concomitant]
     Active Substance: METFORMIN HYDROCHLORIDE
     Dosage: TID (500 MG/500 MG/1000 MG)
  10. AMANTADINE HYDROCHLORIDE. [Suspect]
     Active Substance: AMANTADINE HYDROCHLORIDE
     Indication: PARKINSON^S DISEASE
     Dosage: INCREASE IN THE OUTPATIENT DOSE OF AMANTADINE FROM 100 MG BID TO 100 MG TID
  11. NORTRIPTYLINE [Concomitant]
     Active Substance: NORTRIPTYLINE
     Dosage: 25 MG QHS
  12. ROPINIROLE/ROPINIROLE HYDROCHLORIDE [Concomitant]
  13. ASPIRIN. [Concomitant]
     Active Substance: ASPIRIN
  14. SIMVASTATIN. [Concomitant]
     Active Substance: SIMVASTATIN
     Dosage: QHS

REACTIONS (9)
  - Withdrawal syndrome [Recovered/Resolved]
  - Delirium [Recovered/Resolved]
  - Paranoia [Recovered/Resolved]
  - Catatonia [Recovered/Resolved]
  - Cognitive disorder [Recovered/Resolved]
  - Condition aggravated [Recovered/Resolved]
  - Mental status changes [Recovered/Resolved]
  - Major depression [Recovered/Resolved]
  - Agitation [Recovered/Resolved]
